FAERS Safety Report 10200659 (Version 1)
Quarter: 2014Q2

REPORT INFORMATION
  Report Type: Spontaneous
  Country: US (occurrence: US)
  Receive Date: 20140528
  Receipt Date: 20140528
  Transmission Date: 20141212
  Serious: No
  Sender: FDA-Public Use
  Company Number: US-TEVA-463540USA

PATIENT
  Age: 18 Year
  Sex: Female
  Weight: 68.1 kg

DRUGS (1)
  1. SEASONIQUE [Suspect]
     Indication: CONTRACEPTION
     Dates: start: 20131130

REACTIONS (2)
  - Vaginal haemorrhage [Not Recovered/Not Resolved]
  - Contusion [Not Recovered/Not Resolved]
